FAERS Safety Report 19950740 (Version 2)
Quarter: 2021Q4

REPORT INFORMATION
  Report Type: Spontaneous
  Country: US (occurrence: US)
  Receive Date: 20211013
  Receipt Date: 20211103
  Transmission Date: 20220303
  Serious: Yes (Hospitalization)
  Sender: FDA-Public Use
  Company Number: US-INTRA-CELLULAR THERAPIES, INC.-2021ICT00426

PATIENT
  Age: 56 Year
  Sex: Female

DRUGS (6)
  1. CAPLYTA [Suspect]
     Active Substance: LUMATEPERONE
     Indication: Schizophrenia
     Dosage: 42 MG, 1X/DAY
     Route: 048
     Dates: start: 202109, end: 202109
  2. HALDOL [Concomitant]
     Active Substance: HALOPERIDOL
  3. ABILIFY [Concomitant]
     Active Substance: ARIPIPRAZOLE
  4. PROPRANOLOL [Concomitant]
     Active Substance: PROPRANOLOL HYDROCHLORIDE
  5. DEPAKOTE [Concomitant]
     Active Substance: DIVALPROEX SODIUM
  6. AMANTADINE [Concomitant]
     Active Substance: AMANTADINE

REACTIONS (3)
  - Fall [Recovered/Resolved]
  - Dizziness [Unknown]
  - Sedation [Unknown]

NARRATIVE: CASE EVENT DATE: 20210901
